FAERS Safety Report 8393920 (Version 4)
Quarter: 2013Q2

REPORT INFORMATION
  Report Type: Spontaneous
  Country: US (occurrence: US)
  Receive Date: 20120207
  Receipt Date: 20130523
  Transmission Date: 20140414
  Serious: Yes (Death, Hospitalization, Other)
  Sender: FDA-Public Use
  Company Number: US-B.I. PHARMACEUTICALS,INC./RIDGEFIELD-2012-BP-02114BP

PATIENT
  Age: 80 Year
  Sex: Male
  Weight: 92.99 kg

DRUGS (10)
  1. PRADAXA [Suspect]
     Indication: ATRIAL FIBRILLATION
     Dosage: 300 MG
     Route: 048
     Dates: start: 20110119, end: 20111102
  2. PRADAXA [Suspect]
     Indication: ANTICOAGULANT THERAPY
  3. AMLODIPINE/VALSARTAN/HYDROCHLOROTHIAZIDE [Concomitant]
  4. ZOCOR [Concomitant]
     Dosage: 20 MG
  5. PROZAC [Concomitant]
     Dosage: 10 MG
  6. ALLOPURINOL [Concomitant]
     Dosage: 150 MG
  7. TRENTAL [Concomitant]
     Dosage: 400 MG
  8. FLOMAX [Concomitant]
     Dosage: 0.4 MG
  9. BACTRIM DS [Concomitant]
  10. CELEBREX [Concomitant]
     Dosage: 400 MG

REACTIONS (9)
  - Death [Fatal]
  - Mouth haemorrhage [Recovered/Resolved]
  - Epistaxis [Recovered/Resolved]
  - Ulcer haemorrhage [Recovered/Resolved]
  - Intestinal ischaemia [Recovered/Resolved]
  - Lung disorder [Not Recovered/Not Resolved]
  - Shock haemorrhagic [Unknown]
  - Upper gastrointestinal haemorrhage [Unknown]
  - Coagulopathy [Unknown]
